FAERS Safety Report 26134769 (Version 1)
Quarter: 2025Q4

REPORT INFORMATION
  Report Type: Spontaneous
  Country: US (occurrence: US)
  Receive Date: 20251209
  Receipt Date: 20251209
  Transmission Date: 20260118
  Serious: No
  Sender: AUROBINDO
  Company Number: US-AUROBINDO-AUR-APL-2025-036835

PATIENT
  Age: 23 Year
  Sex: Female
  Weight: 64.863 kg

DRUGS (1)
  1. MIRTAZAPINE [Suspect]
     Active Substance: MIRTAZAPINE
     Indication: Anxiety
     Dosage: 0.1 DOSAGE FORM, ONCE A DAY

REACTIONS (2)
  - Adverse drug reaction [Unknown]
  - Rash [Unknown]
